FAERS Safety Report 4528977-4 (Version None)
Quarter: 2004Q4

REPORT INFORMATION
  Report Type: 
  Country: None (occurrence: None)
  Receive Date: 20041214
  Receipt Date: 20041126
  Transmission Date: 20050328
  Serious: Yes (Life-Threatening)
  Sender: FDA-Public Use
  Company Number: SP-2004-001953

PATIENT
  Age: 75 Year
  Sex: Male

DRUGS (2)
  1. VOTUM 10 MG [Suspect]
     Indication: HYPERTENSION
     Dosage: 10 MG ONCE PO
     Route: 048
     Dates: start: 20040804, end: 20040804
  2. VOTUM 10 MG [Suspect]
     Indication: HYPERTENSION
     Dosage: 10 MG ONCE PO
     Route: 048
     Dates: start: 20040920, end: 20040920

REACTIONS (2)
  - BLOOD PRESSURE DECREASED [None]
  - TACHYARRHYTHMIA [None]
